FAERS Safety Report 13474588 (Version 2)
Quarter: 2017Q2

REPORT INFORMATION
  Report Type: Spontaneous
  Country: None (occurrence: FR)
  Receive Date: 20170424
  Receipt Date: 20170519
  Transmission Date: 20170830
  Serious: Yes (Disabling)
  Sender: FDA-Public Use
  Company Number: FR-MERZ NORTH AMERICA, INC.-17MRZ-00138

PATIENT
  Age: 55 Year
  Sex: Female

DRUGS (5)
  1. ASCLERA [Suspect]
     Active Substance: POLIDOCANOL
     Indication: VARICOSE VEIN
     Dosage: 10ML
     Route: 042
     Dates: start: 20170309, end: 20170309
  2. DIFFU K (POTASSIUM CHLORIDE) [Concomitant]
  3. MACROGOL (MACROGOL) [Concomitant]
  4. MAGNE B6 (MAGNESIUM, VITAMIN B6) [Concomitant]
  5. LOGROTON (METOPROLOL) [Concomitant]

REACTIONS (1)
  - Deep vein thrombosis [Recovering/Resolving]

NARRATIVE: CASE EVENT DATE: 20170316
